FAERS Safety Report 9263273 (Version 1)
Quarter: 2013Q2

REPORT INFORMATION
  Report Type: Spontaneous
  Country: US (occurrence: US)
  Receive Date: 20130430
  Receipt Date: 20130430
  Transmission Date: 20140414
  Serious: No
  Sender: FDA-Public Use
  Company Number: US-009507513-1304USA015596

PATIENT
  Age: 71 Year
  Sex: Male

DRUGS (9)
  1. DULERA [Suspect]
     Indication: CHRONIC OBSTRUCTIVE PULMONARY DISEASE
     Dosage: 200MCG/5MCG TAKEN 2 PUFFS TWICE DAILY
     Route: 055
     Dates: start: 201301
  2. VENTOLIN (ALBUTEROL) [Concomitant]
  3. ASPIRIN [Concomitant]
  4. METOPROLOL [Concomitant]
  5. LIPITOR [Concomitant]
  6. PRADAXA [Concomitant]
  7. LOSARTAN POTASSIUM [Concomitant]
  8. VITAMINS (UNSPECIFIED) [Concomitant]
  9. CALCIUM (UNSPECIFIED) [Concomitant]

REACTIONS (3)
  - Throat irritation [Unknown]
  - Dysphonia [Unknown]
  - Dry mouth [Unknown]
